FAERS Safety Report 6096223-9 (Version None)
Quarter: 2009Q1

REPORT INFORMATION
  Report Type: 
  Country: None (occurrence: None)
  Receive Date: 20090227
  Receipt Date: 20081104
  Transmission Date: 20090719
  Serious: Yes (Other)
  Sender: FDA-Public Use
  Company Number: A0750797A

PATIENT

DRUGS (1)
  1. LAMOTRIGINE [Suspect]

REACTIONS (1)
  - CONVULSION [None]
